FAERS Safety Report 6678545-3 (Version None)
Quarter: 2010Q2

REPORT INFORMATION
  Report Type: 
  Country: None (occurrence: None)
  Receive Date: 20100413
  Receipt Date: 20100401
  Transmission Date: 20101027
  Serious: Yes (Other)
  Sender: FDA-Public Use
  Company Number: US-JNJFOC-20100401143

PATIENT

DRUGS (2)
  1. LEVAQUIN [Suspect]
     Indication: DRUG USE FOR UNKNOWN INDICATION
     Route: 048
  2. PREDNISOLONE [Concomitant]
     Route: 065

REACTIONS (5)
  - ARTHRALGIA [None]
  - DEPRESSION [None]
  - DIZZINESS [None]
  - MENISCUS LESION [None]
  - TENDON PAIN [None]
